FAERS Safety Report 9009709 (Version 3)
Quarter: 2013Q1

REPORT INFORMATION
  Report Type: Spontaneous
  Country: FR (occurrence: FR)
  Receive Date: 20130110
  Receipt Date: 20130304
  Transmission Date: 20140127
  Serious: Yes (Death, Hospitalization)
  Sender: FDA-Public Use
  Company Number: FR-PFIZER INC-2013001952

PATIENT
  Age: 55 Year
  Sex: Male

DRUGS (6)
  1. MEDROL [Suspect]
     Dosage: UNK
     Route: 048
     Dates: start: 2012
  2. KEPPRA [Suspect]
     Dosage: 500 MG, 2X/DAY
     Route: 048
     Dates: start: 201204
  3. DIFFU K [Suspect]
     Dosage: UNK, 2X/DAY
     Route: 048
     Dates: start: 2012
  4. TEMODAL [Suspect]
     Indication: GLIOBLASTOMA
     Dosage: COURSE-DEPENDING DOSAGE (130 ML), UNK
     Dates: start: 20120606, end: 20121014
  5. INEXIUM [Suspect]
     Dosage: 1 DF, 1X/DAY
     Route: 048
     Dates: start: 2012, end: 20121106
  6. PARACETAMOL [Suspect]
     Dosage: UNK
     Route: 048

REACTIONS (6)
  - Death [Fatal]
  - Hepatitis acute [Not Recovered/Not Resolved]
  - Mixed liver injury [Not Recovered/Not Resolved]
  - Somnolence [Not Recovered/Not Resolved]
  - Headache [Not Recovered/Not Resolved]
  - Vomiting [Not Recovered/Not Resolved]
